FAERS Safety Report 7206460-5 (Version None)
Quarter: 2010Q4

REPORT INFORMATION
  Report Type: 
  Country: None (occurrence: None)
  Receive Date: 20101229
  Receipt Date: 20101229
  Transmission Date: 20110411
  Serious: Yes (Other)
  Sender: FDA-Public Use
  Company Number: None

PATIENT
  Age: 39 Year
  Sex: Female
  Weight: 69.8539 kg

DRUGS (2)
  1. TOPIRAMATE [Suspect]
     Indication: HEADACHE
     Dosage: 200 MILLIGRAMS PO
     Route: 048
     Dates: start: 20100826, end: 20101222
  2. TOPIRAMATE [Suspect]
     Indication: STRESS
     Dosage: 200 MILLIGRAMS PO
     Route: 048
     Dates: start: 20100826, end: 20101222

REACTIONS (6)
  - ANXIETY [None]
  - CONDITION AGGRAVATED [None]
  - DEPRESSION [None]
  - DRUG INEFFECTIVE [None]
  - ROAD TRAFFIC ACCIDENT [None]
  - SUICIDAL IDEATION [None]
